FAERS Safety Report 7089262-2 (Version None)
Quarter: 2010Q4

REPORT INFORMATION
  Report Type: 
  Country: None (occurrence: None)
  Receive Date: 20101108
  Receipt Date: 20100915
  Transmission Date: 20110411
  Serious: Yes (Life-Threatening, Hospitalization)
  Sender: FDA-Public Use
  Company Number: JP-MERCK-1009USA03647

PATIENT
  Age: 72 Year
  Sex: Female

DRUGS (5)
  1. COZAAR [Suspect]
     Indication: HYPERTENSION
     Route: 048
     Dates: start: 20100127, end: 20100201
  2. TAKEPRON [Concomitant]
     Indication: GASTRIC ULCER
     Dosage: DOSAGE U DURING A DAY
     Route: 048
     Dates: start: 20091229, end: 20100210
  3. GASMOTIN [Suspect]
     Dosage: DOSAGE U DURING A DAY
     Route: 048
  4. PREDNISOLONE [Concomitant]
     Dosage: DIVIDED DOSE FREQUENCY UNKNOWN
     Route: 065
  5. GLOBULIN, IMMUNE [Concomitant]
     Dosage: DOSAGE U DURING DAY
     Route: 042

REACTIONS (13)
  - AGRANULOCYTOSIS [None]
  - CHILLS [None]
  - DIALYSIS [None]
  - DRUG LEVEL INCREASED [None]
  - DYSPNOEA EXERTIONAL [None]
  - HAEMATURIA [None]
  - HYPERTHERMIA [None]
  - MALAISE [None]
  - NEPHRITIS [None]
  - PALPITATIONS [None]
  - PANCYTOPENIA [None]
  - PROTEINURIA [None]
  - RENAL IMPAIRMENT [None]
